FAERS Safety Report 6681283-4 (Version None)
Quarter: 2010Q2

REPORT INFORMATION
  Report Type: 
  Country: None (occurrence: None)
  Receive Date: 20100414
  Receipt Date: 20100407
  Transmission Date: 20101027
  Serious: Yes (Other)
  Sender: FDA-Public Use
  Company Number: US-ROCHE-696809

PATIENT
  Age: 80 Year
  Sex: Male

DRUGS (13)
  1. BONIVA [Suspect]
     Indication: OSTEOPOROSIS
     Route: 048
  2. ACTOS [Concomitant]
  3. SYNTHROID [Concomitant]
  4. GLYBURIDE [Concomitant]
  5. ALLOPURINOL [Concomitant]
  6. LASIX [Concomitant]
  7. ATENOLOL [Concomitant]
  8. NORVASC [Concomitant]
  9. CRESTOR [Concomitant]
  10. POTASSIUM CHLORIDE [Concomitant]
  11. ANDROGEL [Concomitant]
  12. VITAMIN D3 [Concomitant]
  13. ASPIRIN [Concomitant]

REACTIONS (1)
  - MULTIPLE MYELOMA [None]
